FAERS Safety Report 8115189-0 (Version None)
Quarter: 2012Q1

REPORT INFORMATION
  Report Type: 
  Country: None (occurrence: None)
  Receive Date: 20120123
  Receipt Date: 20120106
  Transmission Date: 20120608
  Serious: No
  Sender: FDA-Public Use
  Company Number: 12-001

PATIENT
  Age: 39 Year
  Sex: Female
  Weight: 56.6996 kg

DRUGS (14)
  1. ALLERGENIC EXTRACTS [Suspect]
     Indication: IMMUNE SYSTEM DISORDER
  2. ALLEGRA [Concomitant]
  3. NASONEX (MOMETASONE FUROATE MONOHYDRATE) [Concomitant]
  4. LIDODERM [Concomitant]
  5. ALLERGENIC EXTRACTS [Suspect]
     Indication: IMMUNE SYSTEM DISORDER
  6. NATURAL PROGESTERONE HORMONE REPLACEMENT TOPICAL CREAM [Concomitant]
  7. ALLERGENIC EXTRACTS [Suspect]
     Indication: IMMUNE SYSTEM DISORDER
  8. ALLERGENIC EXTRACTS [Suspect]
     Indication: IMMUNE SYSTEM DISORDER
  9. ALLERGENIC EXTRACTS [Suspect]
     Indication: IMMUNE SYSTEM DISORDER
  10. ALLERGENIC EXTRACTS [Suspect]
     Indication: IMMUNE SYSTEM DISORDER
  11. EFFEXOR [Concomitant]
  12. TRAMADOL HCL [Concomitant]
  13. GABAPENTIN [Concomitant]
  14. ALLERGENIC EXTRACTS [Suspect]
     Indication: IMMUNE SYSTEM DISORDER

REACTIONS (8)
  - NERVE COMPRESSION [None]
  - BEDRIDDEN [None]
  - ERYTHEMA [None]
  - PAIN IN EXTREMITY [None]
  - INJECTION SITE REACTION [None]
  - ABASIA [None]
  - FIBROMYALGIA [None]
  - OEDEMA PERIPHERAL [None]
